FAERS Safety Report 5327262-0 (Version None)
Quarter: 2007Q2

REPORT INFORMATION
  Report Type: 
  Country: None (occurrence: None)
  Receive Date: 20070517
  Receipt Date: 20070508
  Transmission Date: 20071010
  Serious: Yes (Hospitalization)
  Sender: FDA-Public Use
  Company Number: AU-ROCHE-496557

PATIENT
  Age: 3 Year
  Sex: Male

DRUGS (11)
  1. TRETINOIN [Suspect]
     Indication: DRUG USE FOR UNKNOWN INDICATION
     Route: 065
  2. SULFAMETHOXAZOLE AND TRIMETHOPRIM [Suspect]
     Indication: DRUG USE FOR UNKNOWN INDICATION
     Route: 065
  3. FRUSEMIDE [Suspect]
     Indication: DRUG USE FOR UNKNOWN INDICATION
     Route: 065
  4. ONDANSETRON HYDROCHLORIDE DIHYDRATE [Suspect]
     Indication: DRUG USE FOR UNKNOWN INDICATION
     Route: 065
  5. OMEPRAZOLE [Suspect]
     Indication: DRUG USE FOR UNKNOWN INDICATION
     Route: 065
  6. MELPHALAN [Suspect]
     Indication: DRUG USE FOR UNKNOWN INDICATION
     Route: 065
  7. FLUCONAZOLE [Concomitant]
  8. GENTAMICIN [Concomitant]
  9. CLAVULANIC ACID/TICARCILLIN [Concomitant]
  10. CEPHALOTHIN [Concomitant]
  11. CIDOFOVIR [Concomitant]

REACTIONS (3)
  - BLOOD AMYLASE INCREASED [None]
  - PANCREATITIS [None]
  - SEPSIS [None]
